FAERS Safety Report 6216960-2 (Version None)
Quarter: 2009Q2

REPORT INFORMATION
  Report Type: 
  Country: None (occurrence: None)
  Receive Date: 20090604
  Receipt Date: 20090521
  Transmission Date: 20091009
  Serious: Yes (Other)
  Sender: FDA-Public Use
  Company Number: 237108K06USA

PATIENT
  Age: 51 Year
  Sex: Female
  Weight: 100 kg

DRUGS (13)
  1. REBIF [Suspect]
     Indication: MULTIPLE SCLEROSIS
     Dosage: 44 MCG, 3 IN 1 WEEKS
     Dates: start: 20051020
  2. HYZAAR [Concomitant]
  3. PREVACID [Concomitant]
  4. SANCTURA [Concomitant]
  5. ZOLOFT [Concomitant]
  6. XALATAN [Concomitant]
  7. ALPHAGAN [Concomitant]
  8. TOPROL-XL [Concomitant]
  9. CYMBALTA [Concomitant]
  10. NASONEX [Concomitant]
  11. XYZAL (LEVOCETITIZINE DIHYDROCHLORIDE) [Concomitant]
  12. VITAMIN D [Concomitant]
  13. TYLENOL (COTYLENOL) [Concomitant]

REACTIONS (1)
  - TYPE 2 DIABETES MELLITUS [None]
